FAERS Safety Report 15712702 (Version 1)
Quarter: 2018Q4

REPORT INFORMATION
  Report Type: Spontaneous
  Country: FR (occurrence: FR)
  Receive Date: 20181212
  Receipt Date: 20181212
  Transmission Date: 20190205
  Serious: Yes (Other)
  Sender: FDA-Public Use
  Company Number: FR-AUROBINDO-AUR-APL-2018-058339

PATIENT
  Age: 59 Year
  Sex: Female
  Weight: 43 kg

DRUGS (4)
  1. PANTOPRAZOL ARROW 40 MG  POWDER FOR SOLUTION FOR INJECTION [Suspect]
     Active Substance: PANTOPRAZOLE SODIUM
     Indication: PRODUCT USED FOR UNKNOWN INDICATION
     Dosage: 80 MILLIGRAM, DAILY
     Route: 042
     Dates: start: 20180902, end: 20180910
  2. PIPERACILLIN/TAZOBACTAM PANPHARMA [Suspect]
     Active Substance: PIPERACILLIN SODIUM\TAZOBACTAM SODIUM
     Indication: ANTIBIOTIC PROPHYLAXIS
     Dosage: 4 DOSAGE FORM, DAILY
     Route: 042
     Dates: start: 20180907, end: 20180911
  3. FLUCONAZOLE KABI [Suspect]
     Active Substance: FLUCONAZOLE
     Indication: ANTIFUNGAL PROPHYLAXIS
     Dosage: 400 MILLILITER, DAILY
     Route: 042
     Dates: start: 20180908, end: 20180912
  4. NEFOPAM MYLAN [Suspect]
     Active Substance: NEFOPAM
     Indication: PAIN
     Dosage: UNK
     Route: 042
     Dates: start: 20180831, end: 20180908

REACTIONS (1)
  - Cholestasis [Recovered/Resolved]

NARRATIVE: CASE EVENT DATE: 20180913
